FAERS Safety Report 16657272 (Version 4)
Quarter: 2019Q3

REPORT INFORMATION
  Report Type: Report from Study
  Country: CA (occurrence: CA)
  Receive Date: 20190801
  Receipt Date: 20190910
  Transmission Date: 20191004
  Serious: Yes (Hospitalization, Other)
  Sender: FDA-Public Use
  Company Number: CA-TAKEDA-2017TUS018708

PATIENT
  Age: 72 Year
  Sex: Male

DRUGS (16)
  1. PMS ISMN [Concomitant]
     Dosage: UNK
  2. SALOFALK                           /00000301/ [Concomitant]
     Active Substance: AMINOSALICYLIC ACID
     Dosage: 100 MILLIGRAM, QD
  3. DESONIDE. [Concomitant]
     Active Substance: DESONIDE
     Dosage: UNK
  4. VEDOLIZUMAB [Suspect]
     Active Substance: VEDOLIZUMAB
     Indication: COLITIS ULCERATIVE
     Dosage: 300 MILLIGRAM
     Route: 042
     Dates: start: 20170607
  5. VEDOLIZUMAB [Suspect]
     Active Substance: VEDOLIZUMAB
     Dosage: 300 MILLIGRAM, Q4WEEKS
     Route: 042
  6. ROSUVASTATIN. [Concomitant]
     Active Substance: ROSUVASTATIN
     Dosage: UNK
  7. NITROGLYCERIN. [Concomitant]
     Active Substance: NITROGLYCERIN
     Dosage: UNK
  8. ELIQUIS [Concomitant]
     Active Substance: APIXABAN
     Dosage: UNK
  9. CORTIMENT                          /00028601/ [Concomitant]
     Active Substance: HYDROCORTISONE
     Dosage: 9 MILLIGRAM
     Route: 065
  10. VEDOLIZUMAB [Suspect]
     Active Substance: VEDOLIZUMAB
     Dosage: 300 MILLIGRAM, Q4WEEKS
     Route: 042
     Dates: end: 20190702
  11. SOTALOL. [Concomitant]
     Active Substance: SOTALOL
     Dosage: UNK
  12. MEZAVANT [Concomitant]
     Active Substance: MESALAMINE
     Dosage: 1100 MILLIGRAM
  13. VEDOLIZUMAB [Suspect]
     Active Substance: VEDOLIZUMAB
     Dosage: 300 MILLIGRAM, Q4WEEKS
     Route: 042
  14. VEDOLIZUMAB [Suspect]
     Active Substance: VEDOLIZUMAB
     Dosage: 300 MILLIGRAM
     Route: 042
  15. MEZAVANT [Concomitant]
     Active Substance: MESALAMINE
     Dosage: 1100 MILLIGRAM
  16. VEDOLIZUMAB [Suspect]
     Active Substance: VEDOLIZUMAB
     Dosage: 300 MILLIGRAM, Q4WEEKS
     Route: 042
     Dates: start: 20180206

REACTIONS (11)
  - Abdominal pain [Not Recovered/Not Resolved]
  - Therapeutic reaction time decreased [Unknown]
  - Off label use [Unknown]
  - Herpes zoster [Recovered/Resolved]
  - Inflammation [Not Recovered/Not Resolved]
  - Bloody discharge [Not Recovered/Not Resolved]
  - Neuralgia [Not Recovered/Not Resolved]
  - Weight decreased [Unknown]
  - Frequent bowel movements [Not Recovered/Not Resolved]
  - Colitis [Not Recovered/Not Resolved]
  - Colectomy [Unknown]

NARRATIVE: CASE EVENT DATE: 2017
